FAERS Safety Report 7931196-2 (Version None)
Quarter: 2011Q4

REPORT INFORMATION
  Report Type: 
  Country: None (occurrence: None)
  Receive Date: 20111121
  Receipt Date: 20111110
  Transmission Date: 20120403
  Serious: Yes (Hospitalization, Other)
  Sender: FDA-Public Use
  Company Number: US-BAYER-2011-074861

PATIENT
  Age: 19 Year
  Sex: Female
  Weight: 52.154 kg

DRUGS (2)
  1. YASMIN [Suspect]
     Indication: ENDOMETRIOSIS
     Dosage: UNK
     Dates: start: 20040101, end: 20050101
  2. YASMIN [Suspect]
     Indication: PREMENSTRUAL SYNDROME

REACTIONS (3)
  - PAIN [None]
  - INJURY [None]
  - GALLBLADDER INJURY [None]
